FAERS Safety Report 15541939 (Version 3)
Quarter: 2019Q2

REPORT INFORMATION
  Report Type: Spontaneous
  Country: GB (occurrence: GB)
  Receive Date: 20181023
  Receipt Date: 20190501
  Transmission Date: 20190711
  Serious: Yes (Death, Hospitalization)
  Sender: FDA-Public Use
  Company Number: GB-TEVA-2018-GB-966804

PATIENT
  Age: 85 Year
  Sex: Male
  Weight: 78.1 kg

DRUGS (25)
  1. ONDANSETRON [Concomitant]
     Active Substance: ONDANSETRON
  2. CLENIL MODULITE [Concomitant]
     Active Substance: BECLOMETHASONE DIPROPIONATE
  3. LAXIDO [Concomitant]
     Active Substance: POLYETHYLENE GLYCOL 3350\POTASSIUM CHLORIDE\SODIUM BICARBONATE\SODIUM CHLORIDE
  4. FUROSEMIDE. [Concomitant]
     Active Substance: FUROSEMIDE
  5. CYCLIZINE [Concomitant]
     Active Substance: CYCLIZINE
  6. PARACETAMOL [Concomitant]
     Active Substance: ACETAMINOPHEN
  7. DIHYDROCODEINE [Concomitant]
     Active Substance: DIHYDROCODEINE
  8. BISOPROLOL [Concomitant]
     Active Substance: BISOPROLOL
  9. CASSIA (SENNA ALEXANDRINA) [Concomitant]
     Active Substance: HERBALS\SENNOSIDES
  10. OXYCODONE [Concomitant]
     Active Substance: OXYCODONE
  11. ENOXAPARIN [Concomitant]
     Active Substance: ENOXAPARIN
  12. PREDNISOLONE. [Suspect]
     Active Substance: PREDNISOLONE
     Indication: CUTANEOUS VASCULITIS
     Route: 048
     Dates: start: 2018, end: 20180920
  13. FOLIC ACID. [Concomitant]
     Active Substance: FOLIC ACID
  14. ACETYLSALICYLIC ACID [Concomitant]
     Active Substance: ASPIRIN
  15. CALCIUM CARBONATE. [Concomitant]
     Active Substance: CALCIUM CARBONATE
  16. PREDNISOLONE SODIUM PHOSPHATE. [Concomitant]
     Active Substance: PREDNISOLONE SODIUM PHOSPHATE
     Route: 047
  17. SALBUTAMOL [Concomitant]
     Active Substance: ALBUTEROL
  18. RANITIDINE. [Concomitant]
     Active Substance: RANITIDINE
     Indication: PROPHYLAXIS AGAINST GASTROINTESTINAL ULCER
     Dosage: GASTROPROTECTION
  19. MONOFER [Concomitant]
     Active Substance: IRON ISOMALTOSIDE 1000
     Route: 042
     Dates: start: 20180831, end: 20180831
  20. SALMETEROL [Concomitant]
     Active Substance: SALMETEROL
  21. DIGOXIN. [Concomitant]
     Active Substance: DIGOXIN
  22. METOCLOPRAMIDE. [Concomitant]
     Active Substance: METOCLOPRAMIDE
  23. VALACICLOVIR [Concomitant]
     Active Substance: VALACYCLOVIR HYDROCHLORIDE
  24. POTASSIUM PERMANGANATE [Concomitant]
     Active Substance: POTASSIUM PERMANGANATE
     Route: 061
  25. DERMOVATE [Concomitant]
     Active Substance: CLOBETASOL

REACTIONS (1)
  - Upper gastrointestinal haemorrhage [Fatal]

NARRATIVE: CASE EVENT DATE: 20180920
